FAERS Safety Report 21011567 (Version 3)
Quarter: 2023Q2

REPORT INFORMATION
  Report Type: Report from Study
  Country: JP (occurrence: JP)
  Receive Date: 20220627
  Receipt Date: 20230413
  Transmission Date: 20230721
  Serious: Yes (Death, Hospitalization, Other)
  Sender: FDA-Public Use
  Company Number: JP-MSD-2206JPN002602JAA

PATIENT
  Age: 84 Year
  Sex: Male
  Weight: 62 kg

DRUGS (1)
  1. MOLNUPIRAVIR [Suspect]
     Active Substance: MOLNUPIRAVIR
     Indication: COVID-19 treatment
     Dosage: 800 MILLIGRAM, BID
     Dates: start: 20220202, end: 20220206

REACTIONS (2)
  - Respiratory failure [Fatal]
  - Product use issue [Unknown]

NARRATIVE: CASE EVENT DATE: 20220202
